FAERS Safety Report 25872500 (Version 2)
Quarter: 2025Q4

REPORT INFORMATION
  Report Type: Report from Study
  Country: US (occurrence: US)
  Receive Date: 20251002
  Receipt Date: 20251009
  Transmission Date: 20260118
  Serious: Yes (Death)
  Sender: ROCHE
  Company Number: US-ROCHE-10000401575

PATIENT
  Age: 36 Year
  Sex: Female

DRUGS (17)
  1. ACTEMRA [Suspect]
     Active Substance: TOCILIZUMAB
     Indication: Rheumatoid arthritis
     Dosage: INFUSION ?STRENGTH: 200 MG/10 ML
     Route: 042
  2. MEKTOVI [Concomitant]
     Active Substance: BINIMETINIB
  3. CETIRIZINE [Concomitant]
     Active Substance: CETIRIZINE HYDROCHLORIDE
  4. BRAFTOVI [Concomitant]
     Active Substance: ENCORAFENIB
  5. FLUTICASONE PROPIONATE [Concomitant]
     Active Substance: FLUTICASONE PROPIONATE
  6. GABAPENTIN [Concomitant]
     Active Substance: GABAPENTIN
  7. DEXTROSE [Concomitant]
     Active Substance: DEXTROSE MONOHYDRATE
  8. BASAGLAR KWIKPEN U-100 INSULIN [Concomitant]
  9. INSULIN LISPRO [Concomitant]
     Active Substance: INSULIN LISPRO
  10. IPRATROPIUM [Concomitant]
     Active Substance: IPRATROPIUM
  11. LEVOTHYROXINE [Concomitant]
     Active Substance: LEVOTHYROXINE
  12. MAGNESIUM OXIDE [Concomitant]
     Active Substance: MAGNESIUM OXIDE
  13. MELATONIN [Concomitant]
     Active Substance: MELATONIN
  14. NAPROXEN [Concomitant]
     Active Substance: NAPROXEN
  15. ONDANSETRON [Concomitant]
     Active Substance: ONDANSETRON
  16. PREDNISONE [Concomitant]
     Active Substance: PREDNISONE
  17. TRAZODONE [Concomitant]
     Active Substance: TRAZODONE HYDROCHLORIDE

REACTIONS (1)
  - Death [Fatal]
